FAERS Safety Report 8827539 (Version 2)
Quarter: 2015Q1

REPORT INFORMATION
  Report Type: Report from Study
  Country: US (occurrence: US)
  Receive Date: 20121005
  Receipt Date: 20150209
  Transmission Date: 20150721
  Serious: Yes (Death)
  Sender: FDA-Public Use
  Company Number: US-ROCHE-1104270

PATIENT
  Sex: Male

DRUGS (18)
  1. RITUXAN [Suspect]
     Active Substance: RITUXIMAB
     Indication: LYMPHOMA
     Dosage: 250CCNS
     Route: 050
     Dates: start: 20100215
  2. RITUXAN [Suspect]
     Active Substance: RITUXIMAB
     Dosage: 250ML/NS
     Route: 042
     Dates: start: 20100302
  3. NEULASTA [Suspect]
     Active Substance: PEGFILGRASTIM
     Dosage: 21/DEC/2009
     Route: 058
     Dates: start: 20091130
  4. NEUPOGEN [Suspect]
     Active Substance: FILGRASTIM
     Indication: PRODUCT USED FOR UNKNOWN INDICATION
     Route: 058
  5. ALOXI [Concomitant]
     Active Substance: PALONOSETRON HYDROCHLORIDE
     Dosage: 12/NOV/2009
     Route: 042
  6. TYLENOL [Concomitant]
     Active Substance: ACETAMINOPHEN
     Dosage: 02/MAR/2010, 16/MAR/2010, 15/FEB/2010
     Route: 048
  7. BENADRYL [Concomitant]
     Active Substance: DIPHENHYDRAMINE HYDROCHLORIDE
     Dosage: 15/FEB/2010, 02/MAR/2010, 16/MAR/2010
     Route: 048
  8. NEULASTA [Suspect]
     Active Substance: PEGFILGRASTIM
     Indication: PRODUCT USED FOR UNKNOWN INDICATION
     Route: 058
     Dates: start: 20091016
  9. ATIVAN [Concomitant]
     Active Substance: LORAZEPAM
     Dosage: 05/FEB/2010
     Route: 042
  10. RITUXAN [Suspect]
     Active Substance: RITUXIMAB
     Dosage: 250ML/NS
     Route: 042
     Dates: start: 20100316
  11. ROCEPHIN [Suspect]
     Active Substance: CEFTRIAXONE SODIUM
     Indication: PRODUCT USED FOR UNKNOWN INDICATION
     Dosage: 22/OCT/2009 , 50CC
     Route: 042
  12. POTASSIUM CHLORIDE. [Concomitant]
     Active Substance: POTASSIUM CHLORIDE
     Route: 042
  13. BENADRYL [Concomitant]
     Active Substance: DIPHENHYDRAMINE HYDROCHLORIDE
     Route: 042
  14. VINCRISTINE [Concomitant]
     Active Substance: VINCRISTINE
     Dosage: 12/NOV/2009
     Route: 042
  15. SOLU-CORTEF [Concomitant]
     Active Substance: HYDROCORTISONE SODIUM SUCCINATE
     Dosage: 50ML/NS, 15/FEB/2010, 02/MAR/2010
     Route: 042
  16. NEUPOGEN [Suspect]
     Active Substance: FILGRASTIM
     Route: 058
  17. DECADRON [Concomitant]
     Active Substance: DEXAMETHASONE
     Dosage: 12/NOV/2009
     Route: 042
  18. ATIVAN [Concomitant]
     Active Substance: LORAZEPAM
     Dosage: 09/FEB/2010, 15/FEB/2010
     Route: 042

REACTIONS (2)
  - Death [Fatal]
  - Off label use [Unknown]
